FAERS Safety Report 5498504-6 (Version None)
Quarter: 2007Q4

REPORT INFORMATION
  Report Type: 
  Country: None (occurrence: None)
  Receive Date: 20071025
  Receipt Date: 20071025
  Transmission Date: 20080405
  Serious: Yes (Life-Threatening, Hospitalization)
  Sender: FDA-Public Use
  Company Number: None

PATIENT
  Age: 64 Year
  Sex: Female
  Weight: 68.0396 kg

DRUGS (2)
  1. VITA K CONCENTRATE SOL [Suspect]
     Indication: SPIDER VEIN
     Dosage: APPLY SUFFICIENT TWICE DAILY TOP
     Route: 061
     Dates: start: 20070401, end: 20070401
  2. VITA K CONCENTRATE SOL [Suspect]
     Indication: SPIDER VEIN
     Dosage: APPLY SUFFICIENT TWICE DAILY TOP
     Route: 061
     Dates: start: 20070526, end: 20070711

REACTIONS (2)
  - ARRHYTHMIA [None]
  - PALPITATIONS [None]
